FAERS Safety Report 5497529-4 (Version None)
Quarter: 2007Q4

REPORT INFORMATION
  Report Type: 
  Country: None (occurrence: None)
  Receive Date: 20071025
  Receipt Date: 20070103
  Transmission Date: 20080405
  Serious: No
  Sender: FDA-Public Use
  Company Number: A0630238A

PATIENT
  Age: 62 Year
  Sex: Male
  Weight: 84.1 kg

DRUGS (8)
  1. ADVAIR DISKUS 100/50 [Suspect]
     Indication: DRUG USE FOR UNKNOWN INDICATION
     Dosage: 1PUFF TWICE PER DAY
     Route: 055
  2. ASPIRIN [Concomitant]
     Dosage: 325MG PER DAY
     Route: 048
  3. PLAVIX [Concomitant]
     Dosage: 15MG PER DAY
     Route: 048
  4. LIPITOR [Concomitant]
     Dosage: 10MG PER DAY
     Route: 048
  5. ALBUTEROL [Concomitant]
  6. THEOPHYLLINE [Concomitant]
     Dosage: 200MG THREE TIMES PER DAY
     Route: 048
  7. FOSAMAX [Concomitant]
     Dosage: 70MG WEEKLY
     Route: 048
  8. CARDIZEM [Concomitant]
     Dosage: 120MG PER DAY
     Route: 048

REACTIONS (1)
  - TOOTH EROSION [None]
